FAERS Safety Report 10422224 (Version 4)
Quarter: 2014Q4

REPORT INFORMATION
  Report Type: Spontaneous
  Country: US (occurrence: US)
  Receive Date: 20140901
  Receipt Date: 20141204
  Transmission Date: 20150528
  Serious: Yes (Other)
  Sender: FDA-Public Use
  Company Number: US-PFIZER INC-2014239941

PATIENT
  Age: 63 Year
  Sex: Female
  Weight: 62.59 kg

DRUGS (4)
  1. GEODON [Suspect]
     Active Substance: ZIPRASIDONE HYDROCHLORIDE\ZIPRASIDONE MESYLATE
     Indication: DEPRESSION
     Dosage: 40 MG, 3X/DAY
     Dates: start: 20090430
  2. GEODON [Suspect]
     Active Substance: ZIPRASIDONE HYDROCHLORIDE\ZIPRASIDONE MESYLATE
     Dosage: 80 MG, 3X/DAY
     Dates: end: 201405
  3. TOPROL XL [Suspect]
     Active Substance: METOPROLOL SUCCINATE
     Indication: HYPERTENSION
     Dosage: UNK
  4. GEODON [Suspect]
     Active Substance: ZIPRASIDONE HYDROCHLORIDE\ZIPRASIDONE MESYLATE
     Dosage: 20 MG, UNK
     Dates: start: 20140815

REACTIONS (14)
  - Osteoporosis [Unknown]
  - Paraesthesia [Not Recovered/Not Resolved]
  - Neoplasm [Not Recovered/Not Resolved]
  - Feeling abnormal [Unknown]
  - Hypertension [Unknown]
  - Intentional product misuse [Unknown]
  - Atrioventricular block [Unknown]
  - Arrhythmia [Unknown]
  - Alopecia [Not Recovered/Not Resolved]
  - Cardiac disorder [Unknown]
  - Hair growth abnormal [Not Recovered/Not Resolved]
  - Skin discomfort [Not Recovered/Not Resolved]
  - Hypoaesthesia [Not Recovered/Not Resolved]
  - Nail disorder [Not Recovered/Not Resolved]

NARRATIVE: CASE EVENT DATE: 201405
